FAERS Safety Report 8365547-4 (Version None)
Quarter: 2012Q2

REPORT INFORMATION
  Report Type: 
  Country: None (occurrence: None)
  Receive Date: 20120516
  Receipt Date: 20120511
  Transmission Date: 20120825
  Serious: Yes (Hospitalization)
  Sender: FDA-Public Use
  Company Number: US-AMGEN-USASP2012026137

PATIENT
  Age: 87 Year
  Sex: Female
  Weight: 59.864 kg

DRUGS (11)
  1. ALLOPURINOL [Concomitant]
     Indication: GOUT
     Dosage: 100 MG, QD
  2. VICOPROFEN [Concomitant]
     Indication: PAIN
     Dosage: 7.5 UNK, UNK
     Route: 048
  3. PROLIA [Suspect]
     Indication: OSTEOPOROSIS POSTMENOPAUSAL
     Dosage: UNK UNK, Q6MO
  4. PLAVIX [Concomitant]
     Indication: MENINGIOMA
  5. QVAR 40 [Concomitant]
     Indication: CHRONIC OBSTRUCTIVE PULMONARY DISEASE
  6. REQUIP [Concomitant]
     Indication: INSOMNIA
     Dosage: 1 MG, UNK
  7. FISH OIL [Concomitant]
  8. QVAR 40 [Concomitant]
     Indication: ASTHMA
     Dosage: 400 UNK, UNK
  9. XANAX [Concomitant]
     Indication: INSOMNIA
     Dosage: 0.25 MG, QHS
     Route: 048
  10. CHLORTHALIDONE [Concomitant]
  11. CALCIUM WITH VITAMIN D             /00944201/ [Concomitant]
     Indication: OSTEOPOROSIS
     Route: 048

REACTIONS (5)
  - PAIN IN JAW [None]
  - ORAL PAIN [None]
  - WEIGHT DECREASED [None]
  - FACIAL PAIN [None]
  - MASTICATION DISORDER [None]
